FAERS Safety Report 17296933 (Version 1)
Quarter: 2020Q1

REPORT INFORMATION
  Report Type: Spontaneous
  Country: PL (occurrence: PL)
  Receive Date: 20200121
  Receipt Date: 20200121
  Transmission Date: 20200409
  Serious: Yes (Other)
  Sender: FDA-Public Use
  Company Number: PL-MYLANLABS-2020M1005059

PATIENT
  Age: 31 Year
  Sex: Male

DRUGS (8)
  1. METRONIDAZOLE. [Suspect]
     Active Substance: METRONIDAZOLE
     Indication: ENTEROCOCCAL INFECTION
  2. IMIPENEM [Suspect]
     Active Substance: IMIPENEM
     Indication: KLEBSIELLA INFECTION
     Dosage: 0.5 G, 2X/DAY
  3. PIPERACILLIN/TAZOBACTAM [Suspect]
     Active Substance: PIPERACILLIN SODIUM\TAZOBACTAM SODIUM
     Indication: ENTEROCOCCAL INFECTION
  4. METRONIDAZOLE. [Suspect]
     Active Substance: METRONIDAZOLE
     Indication: ESCHERICHIA INFECTION
     Dosage: 0.5 G, 3X/DAY
  5. AMIKACIN. [Suspect]
     Active Substance: AMIKACIN
     Indication: ENTEROCOCCAL INFECTION
     Dosage: 1 G, (EVERY 48 HOURS)
  6. COLISTIN [Suspect]
     Active Substance: COLISTIN
     Indication: KLEBSIELLA INFECTION
     Dosage: 3 MILLION U, 3X/DAY
  7. COLISTIN [Suspect]
     Active Substance: COLISTIN
     Dosage: 2 MILLION U, 2X/DAY
  8. AMIKACIN. [Suspect]
     Active Substance: AMIKACIN
     Indication: ESCHERICHIA INFECTION
     Dosage: 0.6 G, DAILY

REACTIONS (1)
  - Pathogen resistance [Unknown]
